FAERS Safety Report 8998090 (Version 1)
Quarter: 2013Q1

REPORT INFORMATION
  Report Type: Spontaneous
  Country: US (occurrence: US)
  Receive Date: 20130104
  Receipt Date: 20130104
  Transmission Date: 20140127
  Serious: Yes (Hospitalization)
  Sender: FDA-Public Use
  Company Number: US-COVIDIEN/TYCO HEALTHCARE/MALLINCKRODT-T201203475

PATIENT
  Age: 50 Year
  Sex: Male

DRUGS (3)
  1. OPTIRAY [Suspect]
     Indication: COMPUTERISED TOMOGRAM
     Dosage: 90 ML, SINGLE
     Route: 042
     Dates: start: 20120918, end: 20120918
  2. TRAMADOL [Concomitant]
     Dosage: UNK
  3. FLEXERIL                           /00428402/ [Concomitant]
     Dosage: UNK

REACTIONS (3)
  - Dyspnoea [Recovering/Resolving]
  - Throat tightness [Recovering/Resolving]
  - Urticaria [Recovering/Resolving]
